FAERS Safety Report 11272858 (Version 3)
Quarter: 2015Q3

REPORT INFORMATION
  Report Type: Spontaneous
  Country: US (occurrence: US)
  Receive Date: 20150715
  Receipt Date: 20150827
  Transmission Date: 20151125
  Serious: No
  Sender: FDA-Public Use
  Company Number: US-PFIZER INC-2015227895

PATIENT
  Age: 16 Year
  Sex: Male
  Weight: 69 kg

DRUGS (2)
  1. XALKORI [Suspect]
     Active Substance: CRIZOTINIB
     Indication: FIBROMATOSIS
     Dosage: 250 MG, 2X/DAY
     Route: 048
     Dates: start: 201502
  2. XALKORI [Suspect]
     Active Substance: CRIZOTINIB
     Dosage: 500 MG, 2X/DAY
     Route: 048
     Dates: start: 20150620

REACTIONS (2)
  - Product use issue [Unknown]
  - Dyspnoea [Recovered/Resolved]

NARRATIVE: CASE EVENT DATE: 201502
